FAERS Safety Report 6438588-1 (Version None)
Quarter: 2009Q4

REPORT INFORMATION
  Report Type: 
  Country: None (occurrence: None)
  Receive Date: 20091110
  Receipt Date: 20091026
  Transmission Date: 20100525
  Serious: Yes (Death, Hospitalization)
  Sender: FDA-Public Use
  Company Number: 2009AC000271

PATIENT
  Sex: Female
  Weight: 75.7507 kg

DRUGS (5)
  1. DIGOXIN [Suspect]
     Dosage: PO
     Route: 048
  2. ALDRIN [Concomitant]
  3. NEXIUM [Concomitant]
  4. POTASSIUM CHLORIDE [Concomitant]
  5. CITRACAL [Concomitant]

REACTIONS (6)
  - ABDOMINAL DISTENSION [None]
  - ABDOMINAL PAIN UPPER [None]
  - AORTIC STENOSIS [None]
  - ATRIAL PRESSURE INCREASED [None]
  - HIATUS HERNIA [None]
  - NAUSEA [None]
